FAERS Safety Report 16167814 (Version 5)
Quarter: 2022Q3

REPORT INFORMATION
  Report Type: Report from Study
  Country: CN (occurrence: None)
  Receive Date: 20190408
  Receipt Date: 20220821
  Transmission Date: 20221027
  Serious: Yes (Hospitalization)
  Sender: FDA-Public Use
  Company Number: CN-ROCHE-2246093

PATIENT
  Age: 59 Year
  Sex: Male
  Weight: 73 kg

DRUGS (14)
  1. TOCILIZUMAB [Suspect]
     Active Substance: TOCILIZUMAB
     Indication: Rheumatoid arthritis
     Dosage: DATE OF MOST RECENT DOSE OF TOCILIZUMAB PRIOR TO SAE ONSET 02/JAN/2019?162 MG GIVEN AS 0.9 MILLILITE
     Route: 058
     Dates: start: 20181218
  2. METHOTREXATE [Suspect]
     Active Substance: METHOTREXATE
     Indication: Rheumatoid arthritis
     Dosage: DATE OF MOST RECENT DOSE OF METHOTREXATE PRIOR TO AE ONSET 09/JAN/2019?STABLE DOSES AT 10 TO 25 MG O
     Route: 048
     Dates: start: 20181219
  3. FOLIC ACID [Concomitant]
     Active Substance: FOLIC ACID
     Dates: start: 201703
  4. DICLOFENAC SODIUM [Concomitant]
     Active Substance: DICLOFENAC SODIUM
     Indication: Rheumatoid arthritis
     Route: 048
     Dates: start: 201806
  5. METFORMIN [Concomitant]
     Active Substance: METFORMIN HYDROCHLORIDE
     Indication: Diabetes mellitus
     Dates: start: 201806
  6. NIFEDIPINE [Concomitant]
     Active Substance: NIFEDIPINE
     Indication: Hypertension
     Dates: start: 201503
  7. ISONIAZID [Concomitant]
     Active Substance: ISONIAZID
     Route: 048
     Dates: start: 20181118, end: 20190212
  8. DIETARY SUPPLEMENT\OPHIOCORDYCEPS SINENSIS [Concomitant]
     Active Substance: DIETARY SUPPLEMENT\OPHIOCORDYCEPS SINENSIS
     Dates: start: 20190111, end: 20190125
  9. MOXIFLOXACIN [Concomitant]
     Active Substance: MOXIFLOXACIN
     Indication: Interstitial lung disease
     Route: 048
     Dates: start: 20190111, end: 20190125
  10. CEFEPIME [Concomitant]
     Active Substance: CEFEPIME HYDROCHLORIDE
     Route: 042
     Dates: start: 20190111, end: 20190124
  11. ETIMICIN SULFATE [Concomitant]
     Active Substance: ETIMICIN SULFATE
     Route: 042
     Dates: start: 20190113, end: 20190121
  12. LEFLUNOMIDE [Concomitant]
     Active Substance: LEFLUNOMIDE
     Indication: Rheumatoid arthritis
     Route: 048
     Dates: start: 20190213
  13. CLINDAMYCIN [Concomitant]
     Active Substance: CLINDAMYCIN
     Dates: start: 20190108, end: 20190110
  14. RIBAVIRIN [Concomitant]
     Active Substance: RIBAVIRIN
     Dates: start: 20190108, end: 20190110

REACTIONS (1)
  - Interstitial lung disease [Recovered/Resolved with Sequelae]

NARRATIVE: CASE EVENT DATE: 20190111
